FAERS Safety Report 17850221 (Version 2)
Quarter: 2020Q2

REPORT INFORMATION
  Report Type: Report from Study
  Country: JP (occurrence: JP)
  Receive Date: 20200602
  Receipt Date: 20200622
  Transmission Date: 20200714
  Serious: Yes (Other)
  Sender: FDA-Public Use
  Company Number: JP-AMGEN-JPNNI2020084229

PATIENT
  Age: 74 Year
  Sex: Male
  Weight: 61 kg

DRUGS (16)
  1. BAYASPIRIN [Concomitant]
     Active Substance: ASPIRIN
     Indication: PROPHYLAXIS
     Dosage: 200 MILLIGRAM, QD
     Route: 048
  2. NITROPEN [Concomitant]
     Active Substance: NITROGLYCERIN
     Dosage: 0.3 MILLIGRAM, (DAILY) AS NECESSARY
     Route: 048
  3. MUCOSTA [Concomitant]
     Active Substance: REBAMIPIDE
     Dosage: ADEQUATE DOSE, Q4H
     Route: 047
  4. SANCOBA [Concomitant]
     Active Substance: CYANOCOBALAMIN
     Dosage: ADEQUATE DOSE, QID
     Route: 047
  5. LYRICA [Concomitant]
     Active Substance: PREGABALIN
     Dosage: 50 MILLIGRAM, QD
     Route: 048
  6. HYALEIN MINI [Concomitant]
     Active Substance: HYALURONATE SODIUM
     Dosage: ADEQUATE DOSE, Q4H
     Route: 047
  7. GASTER [Concomitant]
     Active Substance: FAMOTIDINE
     Dosage: 40 MILLIGRAM, QD
     Route: 048
  8. MOHRUS L [Concomitant]
     Active Substance: KETOPROFEN
     Dosage: 1 SHEET, QD
     Route: 061
  9. ZETIA [Concomitant]
     Active Substance: EZETIMIBE
     Indication: TYPE IIA HYPERLIPIDAEMIA
     Dosage: 10 MILLIGRAM, QD
  10. AMLODIN [Concomitant]
     Active Substance: AMLODIPINE BESYLATE
     Dosage: 2.5 MILLIGRAM, QD
     Route: 048
  11. BETAMETHASONE SODIUM PHOSPHATE [Concomitant]
     Active Substance: BETAMETHASONE SODIUM PHOSPHATE
     Dosage: ADEQUATE DOSE, BID
     Route: 047
  12. EVOLOCUMAB [Suspect]
     Active Substance: EVOLOCUMAB
     Indication: TYPE IIA HYPERLIPIDAEMIA
     Dosage: 140 MILLIGRAM, Q2WK
     Route: 058
     Dates: start: 20190501
  13. CLOPIDOGREL [Concomitant]
     Active Substance: CLOPIDOGREL BISULFATE
     Indication: PROPHYLAXIS
     Dosage: 75 MILLIGRAM, QD
     Route: 048
     Dates: end: 20190928
  14. ZOVIRAX [Concomitant]
     Active Substance: ACYCLOVIR
     Dosage: ADEQUATE DOSE, TID
  15. LIVALO [Concomitant]
     Active Substance: PITAVASTATIN CALCIUM
     Indication: TYPE IIA HYPERLIPIDAEMIA
     Dosage: 4 MILLIGRAM, QD
  16. VALACICLOVIR [Concomitant]
     Active Substance: VALACYCLOVIR HYDROCHLORIDE
     Indication: PROPHYLAXIS
     Dosage: 1000 MILLIGRAM, QD
     Route: 048

REACTIONS (2)
  - Coronary artery restenosis [Recovered/Resolved]
  - Coronary artery restenosis [Recovered/Resolved]

NARRATIVE: CASE EVENT DATE: 20190925
